FAERS Safety Report 11078625 (Version 2)
Quarter: 2015Q2

REPORT INFORMATION
  Report Type: Report from Study
  Country: US (occurrence: None)
  Receive Date: 20150428
  Receipt Date: 20150508
  Transmission Date: 20150821
  Serious: Yes (Hospitalization)
  Sender: FDA-Public Use
  Company Number: 2015SGN00596

PATIENT
  Age: 73 Year
  Sex: Female

DRUGS (16)
  1. ALLOPURINOL. [Concomitant]
     Active Substance: ALLOPURINOL
  2. ASACOL [Concomitant]
     Active Substance: MESALAMINE
  3. COMPAZINE /00013302/ (PROCHLORPERAZINE EDISYLATE) [Concomitant]
  4. TRAMADOL [Concomitant]
     Active Substance: TRAMADOL
  5. POTASSIUM CHLORIDE. [Concomitant]
     Active Substance: POTASSIUM CHLORIDE
  6. RESTASIS (CICLOSPORIN) [Concomitant]
  7. BUPROPION HCL ER (BUPROPION HYDROCHLORIDE) [Concomitant]
  8. ACYCLOVIR /00587301/ (ACICLOVIR) [Concomitant]
     Active Substance: ACYCLOVIR
  9. PREDNISONE. [Concomitant]
     Active Substance: PREDNISONE
  10. BRENTUXIMAB VEDOTIN [Suspect]
     Active Substance: BRENTUXIMAB VEDOTIN
     Indication: HODGKIN^S DISEASE
     Dosage: 1.8 MG/KG, QCYCLE
     Route: 042
     Dates: start: 20150317, end: 20150317
  11. VITAMIN D /00107901/ (ERGOCALCIFEROL) [Concomitant]
  12. OMEPRAZOLE. [Concomitant]
     Active Substance: OMEPRAZOLE
  13. ONDANSETRON [Concomitant]
     Active Substance: ONDANSETRON
  14. PRAMIPEXOLE [Concomitant]
     Active Substance: PRAMIPEXOLE
  15. SULINDAC. [Concomitant]
     Active Substance: SULINDAC
  16. AMBIEN [Concomitant]
     Active Substance: ZOLPIDEM TARTRATE

REACTIONS (4)
  - Fall [None]
  - Vertigo [None]
  - Muscular weakness [None]
  - Dizziness [None]

NARRATIVE: CASE EVENT DATE: 20150411
